FAERS Safety Report 9096699 (Version 2)
Quarter: 2013Q2

REPORT INFORMATION
  Report Type: Spontaneous
  Country: FR (occurrence: None)
  Receive Date: 20130124
  Receipt Date: 20130416
  Transmission Date: 20140414
  Serious: Yes (Other)
  Sender: FDA-Public Use
  Company Number: FK201300106

PATIENT
  Age: 32 Year
  Sex: Female

DRUGS (11)
  1. PROPOFOL [Suspect]
     Indication: ANAESTHESIA
     Dosage: 150 MG, 1 IN 1 D
     Route: 042
     Dates: start: 20121203, end: 20121203
  2. MIDAZOLAM [Suspect]
     Indication: PRODUCT USED FOR UNKNOWN INDICATION
     Dosage: 2 MG, 1 IN 1 D
     Route: 042
     Dates: start: 20121203, end: 20121203
  3. SUFENTA [Suspect]
     Indication: PRODUCT USED FOR UNKNOWN INDICATION
     Dosage: 2 UG, 1 IN 1 D
     Route: 042
     Dates: start: 20121203, end: 20121203
  4. ATRACURIUM [Suspect]
     Indication: PRODUCT USED FOR UNKNOWN INDICATION
     Dosage: 30 MG, 1 IN 1 D
     Route: 042
     Dates: start: 20121203, end: 20121203
  5. DEXMETHASONE [Suspect]
     Indication: PRODUCT USED FOR UNKNOWN INDICATION
     Dosage: 8 MG, 1 IN 1 D
     Route: 042
     Dates: start: 20121203, end: 20121203
  6. DROLEPTAN [Suspect]
     Indication: PRODUCT USED FOR UNKNOWN INDICATION
     Dosage: 0.625 MG, 1 IN 1 D
     Route: 042
     Dates: start: 20121203, end: 20121203
  7. KETAMINE [Suspect]
     Indication: PRODUCT USED FOR UNKNOWN INDICATION
  8. PARIET (RABEPRAZOLE SODIUM) [Concomitant]
  9. IXEL (MILNACIPRAN) [Concomitant]
  10. CHRONO INDOCID (INDOMETACIN) [Concomitant]
  11. DOLIPRANE (PARACETAMOL) [Concomitant]

REACTIONS (4)
  - Hypersensitivity [None]
  - Hypotension [None]
  - Shock [None]
  - Bronchospasm [None]
